FAERS Safety Report 5583729-1 (Version None)
Quarter: 2008Q1

REPORT INFORMATION
  Report Type: 
  Country: None (occurrence: None)
  Receive Date: 20080102
  Receipt Date: 20071220
  Transmission Date: 20080703
  Serious: Yes (Other)
  Sender: FDA-Public Use
  Company Number: 2007AL005488

PATIENT
  Age: 30 Year
  Sex: Female
  Weight: 84 kg

DRUGS (6)
  1. TRAMADOL HCL [Suspect]
  2. IBUPROFEN [Concomitant]
  3. KAPAKE INSTS [Concomitant]
  4. LIDOCAINE [Concomitant]
  5. PARACETAMOL [Concomitant]
  6. DICLOFENAC SODIUM [Concomitant]

REACTIONS (4)
  - ERYTHEMA [None]
  - HYPERHIDROSIS [None]
  - MALAISE [None]
  - SKIN REACTION [None]
